FAERS Safety Report 22041726 (Version 1)
Quarter: 2023Q1

REPORT INFORMATION
  Report Type: Spontaneous
  Country: US (occurrence: US)
  Receive Date: 20230227
  Receipt Date: 20230227
  Transmission Date: 20230418
  Serious: No
  Sender: FDA-Public Use
  Company Number: US-SA-2023SA063748

PATIENT
  Age: 56 Year
  Sex: Female

DRUGS (1)
  1. OXALIPLATIN [Suspect]
     Active Substance: OXALIPLATIN
     Dosage: UNK

REACTIONS (5)
  - Peripheral coldness [Unknown]
  - Feeling cold [Unknown]
  - Alopecia [Unknown]
  - Hypoaesthesia [Unknown]
  - Nausea [Unknown]

NARRATIVE: CASE EVENT DATE: 20220919
